FAERS Safety Report 8294459-X (Version None)
Quarter: 2012Q2

REPORT INFORMATION
  Report Type: 
  Country: None (occurrence: None)
  Receive Date: 20120418
  Receipt Date: 20120412
  Transmission Date: 20120825
  Serious: Yes (Other)
  Sender: FDA-Public Use
  Company Number: US-PFIZER INC-2012092115

PATIENT
  Sex: Female
  Weight: 80.726 kg

DRUGS (5)
  1. HYDROCHLOROTHIAZIDE [Concomitant]
     Dosage: 200 MG, 2X/DAY
  2. AZULFIDINE [Concomitant]
     Dosage: 1000 MG, 2X/DAY
  3. PREDNISOLONE [Concomitant]
     Dosage: 5 MG, 1X/DAY
  4. VFEND [Suspect]
     Indication: ASPERGILLOSIS
     Dosage: 200 MG, 2X/DAY
     Route: 048
     Dates: start: 20120201
  5. VFEND [Suspect]
     Dosage: 200 MG, 2X/DAY
     Route: 048

REACTIONS (4)
  - DRY MOUTH [None]
  - DYSGEUSIA [None]
  - ASPERGILLOSIS ORAL [None]
  - DRUG EFFECT DECREASED [None]
